FAERS Safety Report 10218604 (Version 1)
Quarter: 2014Q2

REPORT INFORMATION
  Report Type: Spontaneous
  Country: US (occurrence: None)
  Receive Date: 20140604
  Receipt Date: 20140604
  Transmission Date: 20141212
  Serious: Yes (Hospitalization)
  Sender: FDA-Public Use
  Company Number: None

PATIENT
  Age: 62 Year
  Sex: Male
  Weight: 73.4 kg

DRUGS (2)
  1. NULOJIX [Suspect]
     Indication: RENAL TRANSPLANT
     Dosage: 775 MG . ONCE Q 4 WKS, IV ?05/22/2014 (LAST DOSE)?BETACEPT INFUSION:4-24-2014, 3-27-2014, 3-13-2014,3-5-2014, 3-1-2014.?
     Route: 042
     Dates: start: 20140522
  2. CELLCEPT [Suspect]
     Indication: RENAL TRANSPLANT
     Route: 048
     Dates: start: 20140301

REACTIONS (4)
  - Leukopenia [None]
  - Hypomagnesaemia [None]
  - BK virus infection [None]
  - Cytomegalovirus viraemia [None]
